FAERS Safety Report 4430635-1 (Version None)
Quarter: 2004Q3

REPORT INFORMATION
  Report Type: 
  Country: None (occurrence: None)
  Receive Date: 20040817
  Receipt Date: 20040804
  Transmission Date: 20050211
  Serious: Yes (Hospitalization, Other)
  Sender: FDA-Public Use
  Company Number: 055-0906-M0100069

PATIENT
  Age: 53 Year
  Sex: Female

DRUGS (6)
  1. ACCUPRIL [Suspect]
     Indication: HYPERTENSION
     Dosage: 20 MG (10 MG, 2 IN 1 D), ORAL
     Route: 048
     Dates: start: 20010701
  2. BROMAZEPAM (BROMAZEPAM) [Concomitant]
  3. FLUVASTATIN (FLUVASTATIN) [Concomitant]
  4. LEVOTHYROXINE SODIUM [Concomitant]
  5. ISOSORBIDE MONONITRATE [Concomitant]
  6. SIMVASTATIN [Concomitant]

REACTIONS (3)
  - HYPERTENSIVE CRISIS [None]
  - HYPOTENSION [None]
  - INTERVERTEBRAL DISC PROTRUSION [None]
